FAERS Safety Report 9088150 (Version 1)
Quarter: 2013Q1

REPORT INFORMATION
  Report Type: Spontaneous
  Country: US (occurrence: US)
  Receive Date: 20130201
  Receipt Date: 20130201
  Transmission Date: 20140127
  Serious: Yes (Hospitalization)
  Sender: FDA-Public Use
  Company Number: US-BAYER-2013-010839

PATIENT
  Age: 81 Year
  Sex: Female

DRUGS (1)
  1. NEXAVAR [Suspect]
     Indication: METASTATIC GASTRIC CANCER

REACTIONS (2)
  - Colitis [Recovered/Resolved]
  - Off label use [None]
